FAERS Safety Report 5509773-8 (Version None)
Quarter: 2007Q4

REPORT INFORMATION
  Report Type: 
  Country: None (occurrence: None)
  Receive Date: 20071108
  Receipt Date: 20071031
  Transmission Date: 20080405
  Serious: Yes (Other)
  Sender: FDA-Public Use
  Company Number: BR-ELI_LILLY_AND_COMPANY-BR200711000085

PATIENT
  Age: 32 Year
  Sex: Male

DRUGS (2)
  1. OLANZAPINE [Suspect]
     Indication: SCHIZOPHRENIA, PARANOID TYPE
     Dosage: 10 MG, DAILY (1/D)
     Route: 065
  2. OLANZAPINE [Suspect]
     Dosage: 30 MG, DAILY (1/D)
     Route: 065

REACTIONS (1)
  - NEUTROPENIA [None]
